FAERS Safety Report 14496112 (Version 2)
Quarter: 2018Q1

REPORT INFORMATION
  Report Type: Spontaneous
  Country: PT (occurrence: PT)
  Receive Date: 20180207
  Receipt Date: 20180306
  Transmission Date: 20180509
  Serious: Yes (Other)
  Sender: FDA-Public Use
  Company Number: PT-ROCHE-2063653

PATIENT
  Age: 21 Year
  Sex: Female

DRUGS (1)
  1. ROACTEMRA [Suspect]
     Active Substance: TOCILIZUMAB
     Indication: STILL^S DISEASE
     Route: 058

REACTIONS (4)
  - Diarrhoea [Unknown]
  - Crohn^s disease [Unknown]
  - Haematochezia [Unknown]
  - Off label use [Unknown]
